FAERS Safety Report 4316081-X (Version None)
Quarter: 2004Q1

REPORT INFORMATION
  Report Type: 
  Country: None (occurrence: None)
  Receive Date: 20040309
  Receipt Date: 20040223
  Transmission Date: 20041129
  Serious: Yes (Hospitalization)
  Sender: FDA-Public Use
  Company Number: B0324744A

PATIENT
  Age: 65 Year
  Sex: Female

DRUGS (4)
  1. LITHIUM CARBONATE (FORMULATION UNKNOWN) (LITHIUM CARBONATE) (GENERIC) [Suspect]
     Indication: BIPOLAR I DISORDER
     Dosage: 200 MG/ PER DAY/
  2. METHOTRIMEPRAZINE (METHOTRIMEPRAZINE) [Suspect]
     Indication: BIPOLAR I DISORDER
     Dosage: 10 MG/ PER DAY/
  3. PHENOBARBITAL TAB [Suspect]
     Dosage: 200 MG/ PER DAY/ INTRAMUSCULAR
     Route: 030
  4. CHLORPROMAZINE HCL [Concomitant]

REACTIONS (19)
  - ALANINE AMINOTRANSFERASE INCREASED [None]
  - AMMONIA INCREASED [None]
  - ASPARTATE AMINOTRANSFERASE INCREASED [None]
  - BLOOD ALKALINE PHOSPHATASE INCREASED [None]
  - BLOOD CREATINE PHOSPHOKINASE INCREASED [None]
  - COMA [None]
  - CONVULSION [None]
  - CREUTZFELDT-JAKOB DISEASE [None]
  - DECREASED APPETITE [None]
  - DIARRHOEA [None]
  - ELECTROCARDIOGRAM T WAVE INVERSION [None]
  - GAIT DISTURBANCE [None]
  - HYPOREFLEXIA [None]
  - HYPOTONIA [None]
  - MEMORY IMPAIRMENT [None]
  - MYOCLONUS [None]
  - SLEEP DISORDER [None]
  - THERAPEUTIC AGENT TOXICITY [None]
  - VISUAL DISTURBANCE [None]
